FAERS Safety Report 9003902 (Version 1)
Quarter: 2013Q1

REPORT INFORMATION
  Report Type: Report from Study
  Country: US (occurrence: US)
  Receive Date: 20130108
  Receipt Date: 20130108
  Transmission Date: 20140127
  Serious: Yes (Other)
  Sender: FDA-Public Use
  Company Number: US-JNJFOC-20130101545

PATIENT
  Sex: Female

DRUGS (1)
  1. REMICADE [Suspect]
     Indication: PRODUCT USED FOR UNKNOWN INDICATION
     Dosage: ON REMICADE FOR APPROXIMATELY 2 YEARS
     Route: 042
     Dates: start: 2010, end: 201204

REACTIONS (2)
  - Cardiac disorder [Not Recovered/Not Resolved]
  - Exposure during pregnancy [Recovered/Resolved]
